FAERS Safety Report 9136669 (Version 1)
Quarter: 2013Q1

REPORT INFORMATION
  Report Type: Spontaneous
  Country: GB (occurrence: GB)
  Receive Date: 20130304
  Receipt Date: 20130304
  Transmission Date: 20140127
  Serious: Yes (Death, Hospitalization)
  Sender: FDA-Public Use
  Company Number: PHFR2013GB001457

PATIENT
  Age: 61 None
  Sex: Male

DRUGS (1)
  1. CLOZARIL [Suspect]
     Indication: SCHIZOPHRENIA
     Dosage: UNK
     Dates: start: 20121119

REACTIONS (6)
  - Cardio-respiratory arrest [Fatal]
  - Cardiac arrest [Fatal]
  - Cardiac failure [Unknown]
  - Brain injury [Unknown]
  - Renal failure [Unknown]
  - Circulatory collapse [Unknown]
